FAERS Safety Report 9109905 (Version 1)
Quarter: 2013Q1

REPORT INFORMATION
  Report Type: Report from Study
  Country: IT (occurrence: IT)
  Receive Date: 20130222
  Receipt Date: 20130222
  Transmission Date: 20140127
  Serious: Yes (Hospitalization)
  Sender: FDA-Public Use
  Company Number: IT-BRISTOL-MYERS SQUIBB COMPANY-16442972

PATIENT
  Age: 69 Year
  Sex: Male

DRUGS (1)
  1. IPILIMUMAB [Suspect]
     Indication: PROSTATE CANCER
     Dosage: INTERRUPTED ON 09FEB12; 850 MG TOTAL DOSE
     Route: 042
     Dates: start: 20120209, end: 20120209

REACTIONS (1)
  - Atrial fibrillation [Recovered/Resolved]
